FAERS Safety Report 14494669 (Version 1)
Quarter: 2018Q1

REPORT INFORMATION
  Report Type: Spontaneous
  Country: US (occurrence: US)
  Receive Date: 20180206
  Receipt Date: 20180206
  Transmission Date: 20180509
  Serious: Yes (Other)
  Sender: FDA-Public Use
  Company Number: US-MYLANLABS-2018M1007269

PATIENT
  Age: 49 Year
  Sex: Female

DRUGS (11)
  1. ZOLPIDEM [Concomitant]
     Active Substance: ZOLPIDEM\ZOLPIDEM TARTRATE
     Indication: SLEEP DISORDER
     Dosage: 10 MG AS NEEDED
     Route: 065
  2. TRIAMCINOLONE [Suspect]
     Active Substance: TRIAMCINOLONE
     Indication: BACK PAIN
     Dosage: 80MG; INJECTED 2 TIMES; INTERLAMINAR EPIDURAL SPINAL INJECTION
     Route: 050
  3. MELOXICAM. [Concomitant]
     Active Substance: MELOXICAM
     Indication: BACK PAIN
     Dosage: 15MG DAILY
     Route: 048
  4. FLUOXETINE [Concomitant]
     Active Substance: FLUOXETINE HYDROCHLORIDE
     Indication: BACK PAIN
     Dosage: 10MG DAILY
     Route: 048
  5. BUTALBITAL W/CAFFEINE/PARACETAMOL [Concomitant]
     Active Substance: ACETAMINOPHEN\BUTALBITAL\CAFFEINE
     Indication: PRODUCT USED FOR UNKNOWN INDICATION
     Dosage: ONE TABLET EVERY 4 HOURS BUT NOT TO EXCEED 6 TABLETS DAILY
     Route: 065
  6. STRIBILD [Interacting]
     Active Substance: COBICISTAT\ELVITEGRAVIR\EMTRICITABINE\TENOFOVIR DISOPROXIL FUMARATE
     Indication: HIV INFECTION
     Dosage: ONE TABLET DAILY
     Route: 048
  7. ROSUVASTATIN. [Concomitant]
     Active Substance: ROSUVASTATIN
     Indication: PRODUCT USED FOR UNKNOWN INDICATION
     Dosage: 20MG DAILY
     Route: 048
  8. ENOXAPARIN [Concomitant]
     Active Substance: ENOXAPARIN
     Indication: VENOUS THROMBOSIS
     Dosage: UNK
     Route: 058
  9. GABAPENTIN. [Concomitant]
     Active Substance: GABAPENTIN
     Indication: BACK PAIN
     Dosage: 300MG AT BEDTIME
     Route: 048
  10. SENNOSIDES A+B [Concomitant]
     Active Substance: SENNOSIDES A AND B
     Indication: CONSTIPATION
     Dosage: 8.6MG EVERY 12 HOURS
     Route: 065
  11. NAPROXEN. [Concomitant]
     Active Substance: NAPROXEN
     Indication: BACK PAIN
     Dosage: 500MG EVERY 12 HOURS
     Route: 048

REACTIONS (3)
  - Drug interaction [Recovering/Resolving]
  - Cushing^s syndrome [Recovered/Resolved]
  - Adrenal insufficiency [Recovering/Resolving]
